FAERS Safety Report 5630581-1 (Version None)
Quarter: 2008Q1

REPORT INFORMATION
  Report Type: 
  Country: None (occurrence: None)
  Receive Date: 20080219
  Receipt Date: 20080212
  Transmission Date: 20080703
  Serious: Yes (Hospitalization)
  Sender: FDA-Public Use
  Company Number: B0500472A

PATIENT
  Age: 79 Year
  Sex: Female

DRUGS (10)
  1. CLAMOXYL IV [Suspect]
     Indication: PROPHYLAXIS
     Dosage: 2G SINGLE DOSE
     Route: 042
     Dates: start: 20070921, end: 20070921
  2. NEXIUM [Suspect]
     Indication: PANCREATITIS
     Dosage: 40MG PER DAY
     Route: 048
     Dates: start: 20070923, end: 20071012
  3. TRAMADOL HYDROCHLORIDE AND ACETAMINOPHEN [Suspect]
     Dosage: 1TAB THREE TIMES PER DAY
     Route: 048
     Dates: start: 20070922
  4. PERFALGAN [Suspect]
     Dosage: 1G FOUR TIMES PER DAY
     Route: 042
     Dates: start: 20070921, end: 20070924
  5. DAFALGAN [Suspect]
     Dosage: 1G AS REQUIRED
     Route: 048
     Dates: start: 20070922, end: 20071001
  6. PROFENID [Suspect]
     Dosage: 100MG SINGLE DOSE
     Route: 042
     Dates: start: 20070921, end: 20070921
  7. GENTAMICIN [Suspect]
     Indication: PROPHYLAXIS
     Dosage: 38MG SINGLE DOSE
     Route: 042
     Dates: start: 20070921, end: 20070921
  8. CEFACIDAL [Suspect]
     Indication: PROPHYLAXIS
     Dosage: 1G THREE TIMES PER DAY
     Route: 042
     Dates: start: 20070922, end: 20070923
  9. LAROXYL [Suspect]
     Indication: DRUG USE FOR UNKNOWN INDICATION
     Dosage: 10DROP PER DAY
     Route: 048
  10. LOVENOX [Suspect]
     Indication: THROMBOSIS PROPHYLAXIS
     Route: 058
     Dates: start: 20070921, end: 20071019

REACTIONS (3)
  - LEUKOPENIA [None]
  - NEUTROPENIA [None]
  - NORMOCHROMIC NORMOCYTIC ANAEMIA [None]
